FAERS Safety Report 19415518 (Version 1)
Quarter: 2021Q2

REPORT INFORMATION
  Report Type: Spontaneous
  Country: US (occurrence: US)
  Receive Date: 20210614
  Receipt Date: 20210614
  Transmission Date: 20210717
  Serious: Yes (Other)
  Sender: FDA-Public Use
  Company Number: None

PATIENT
  Age: 49 Year
  Sex: Male

DRUGS (2)
  1. ISOVUE 300 [Suspect]
     Active Substance: IOPAMIDOL
     Dates: start: 20210506, end: 20210506
  2. ISOVUE 300 [Concomitant]
     Active Substance: IOPAMIDOL
     Dates: start: 20210506, end: 20210506

REACTIONS (2)
  - Contrast media reaction [None]
  - Motor dysfunction [None]

NARRATIVE: CASE EVENT DATE: 20210506
